FAERS Safety Report 18516461 (Version 2)
Quarter: 2020Q4

REPORT INFORMATION
  Report Type: Report from Study
  Country: None (occurrence: CA)
  Receive Date: 20201118
  Receipt Date: 20201210
  Transmission Date: 20210114
  Serious: Yes (Hospitalization, Other)
  Sender: FDA-Public Use
  Company Number: CA-ABBVIE-20K-028-3653245-00

PATIENT
  Sex: Female
  Weight: 45.4 kg

DRUGS (1)
  1. HUMIRA [Suspect]
     Active Substance: ADALIMUMAB
     Indication: CROHN^S DISEASE
     Route: 058
     Dates: start: 20090608, end: 2020

REACTIONS (3)
  - Coma [Recovered/Resolved]
  - Infection [Not Recovered/Not Resolved]
  - Intestinal perforation [Unknown]

NARRATIVE: CASE EVENT DATE: 2020
